FAERS Safety Report 17101108 (Version 6)
Quarter: 2020Q3

REPORT INFORMATION
  Report Type: Spontaneous
  Country: US (occurrence: US)
  Receive Date: 20191202
  Receipt Date: 20200925
  Transmission Date: 20201102
  Serious: Yes (Hospitalization, Other)
  Sender: FDA-Public Use
  Company Number: US-SA-2019SA330114

PATIENT

DRUGS (1)
  1. DUPIXENT [Suspect]
     Active Substance: DUPILUMAB
     Indication: DERMATITIS ATOPIC
     Dosage: 300 MG, QOW
     Route: 058
     Dates: start: 20181026

REACTIONS (14)
  - Skin exfoliation [Unknown]
  - Product dose omission issue [Unknown]
  - Cellulitis [Unknown]
  - Skin discharge [Unknown]
  - Respiratory tract congestion [Recovering/Resolving]
  - Vein disorder [Unknown]
  - Dermatitis atopic [Recovering/Resolving]
  - Pruritus [Recovering/Resolving]
  - Blister [Unknown]
  - Nasopharyngitis [Recovering/Resolving]
  - Pruritus [Unknown]
  - Cough [Recovering/Resolving]
  - Dermatitis contact [Unknown]
  - Fluid retention [Unknown]

NARRATIVE: CASE EVENT DATE: 202001
